FAERS Safety Report 17029230 (Version 1)
Quarter: 2019Q4

REPORT INFORMATION
  Report Type: Spontaneous
  Country: GB (occurrence: GB)
  Receive Date: 20191114
  Receipt Date: 20191114
  Transmission Date: 20200122
  Serious: Yes (Disabling, Other)
  Sender: FDA-Public Use
  Company Number: GB-ALKEM LABORATORIES LIMITED-GB-ALKEM-2019-09428

PATIENT
  Age: 80 Year
  Sex: Male
  Weight: 76.2 kg

DRUGS (1)
  1. SOLIFENACIN [Suspect]
     Active Substance: SOLIFENACIN
     Indication: POLLAKIURIA
     Dosage: UNKNOWN
     Route: 048
     Dates: start: 20160201, end: 20160207

REACTIONS (4)
  - Fluid retention [Not Recovered/Not Resolved]
  - Pemphigoid [Unknown]
  - Blister [Not Recovered/Not Resolved]
  - Abnormal weight gain [Unknown]

NARRATIVE: CASE EVENT DATE: 20160207
